FAERS Safety Report 4827905-1 (Version None)
Quarter: 2005Q4

REPORT INFORMATION
  Report Type: 
  Country: None (occurrence: None)
  Receive Date: 20051110
  Receipt Date: 20051104
  Transmission Date: 20060501
  Serious: Yes (Other)
  Sender: FDA-Public Use
  Company Number: USA0511112808

PATIENT
  Age: 74 Year
  Sex: Female

DRUGS (3)
  1. EVISTA [Suspect]
     Indication: OSTEOPOROSIS
     Dates: end: 20051103
  2. NEXIUM (ESCOMEPRAZOLE MAGNESIUM) [Concomitant]
  3. PREMARIN [Concomitant]

REACTIONS (4)
  - OSTEOPENIA [None]
  - OSTEOPOROSIS [None]
  - RETINOPATHY HYPERTENSIVE [None]
  - VISUAL DISTURBANCE [None]
